FAERS Safety Report 4934811-0 (Version None)
Quarter: 2006Q1

REPORT INFORMATION
  Report Type: 
  Country: None (occurrence: None)
  Receive Date: 20060307
  Receipt Date: 20060202
  Transmission Date: 20060701
  Serious: Yes (Hospitalization)
  Sender: FDA-Public Use
  Company Number: US-MERCK-0602USA01754

PATIENT
  Age: 69 Year
  Sex: Female

DRUGS (11)
  1. VIOXX [Suspect]
     Route: 048
  2. AMBIEN [Concomitant]
     Route: 065
  3. TOPROL-XL [Concomitant]
     Route: 065
  4. ASPIRIN [Concomitant]
     Route: 065
  5. ALPRAZOLAM [Concomitant]
     Route: 065
  6. PEPCID [Concomitant]
     Route: 065
  7. ALBUTEROL [Concomitant]
     Route: 055
  8. ADVAIR DISKUS 100/50 [Concomitant]
     Route: 065
  9. FLONASE [Concomitant]
     Route: 065
  10. K-DUR 10 [Concomitant]
     Route: 065
  11. CARAFATE [Concomitant]
     Route: 065

REACTIONS (12)
  - AORTIC VALVE INCOMPETENCE [None]
  - CELLULITIS [None]
  - CHEST PAIN [None]
  - CHRONIC OBSTRUCTIVE PULMONARY DISEASE [None]
  - DEPRESSION [None]
  - DERMATITIS [None]
  - HYPERLIPIDAEMIA [None]
  - HYPERTENSION [None]
  - INSOMNIA [None]
  - TRANSIENT ISCHAEMIC ATTACK [None]
  - URINARY TRACT INFECTION [None]
  - VERTIGO [None]
